FAERS Safety Report 7606993-3 (Version None)
Quarter: 2011Q3

REPORT INFORMATION
  Report Type: 
  Country: None (occurrence: None)
  Receive Date: 20110713
  Receipt Date: 20110711
  Transmission Date: 20111222
  Serious: Yes (Other)
  Sender: FDA-Public Use
  Company Number: CHPA2011US09151

PATIENT
  Age: 80 Year
  Sex: Female

DRUGS (2)
  1. VOLTAREN [Suspect]
     Indication: OSTEOARTHRITIS
     Dosage: 4 G, 3 OR 4 TIMES A DAY
     Route: 061
     Dates: start: 20110526, end: 20110708
  2. ASPIRIN [Concomitant]
     Dosage: 81 MG, QD
     Route: 048

REACTIONS (8)
  - WEIGHT INCREASED [None]
  - OVERDOSE [None]
  - FLUID RETENTION [None]
  - ABDOMINAL DISTENSION [None]
  - DIARRHOEA [None]
  - CHEST PAIN [None]
  - FATIGUE [None]
  - ASTHENIA [None]
